FAERS Safety Report 5513226-0 (Version None)
Quarter: 2007Q4

REPORT INFORMATION
  Report Type: 
  Country: None (occurrence: None)
  Receive Date: 20071108
  Receipt Date: 20071105
  Transmission Date: 20080405
  Serious: Yes (Death, Other)
  Sender: FDA-Public Use
  Company Number: 056-21880-07101420

PATIENT
  Age: 68 Year
  Sex: Male
  Weight: 77 kg

DRUGS (8)
  1. REVLIMID [Suspect]
     Indication: MYELODYSPLASTIC SYNDROME
     Dosage: ORAL
     Route: 048
     Dates: start: 20070915
  2. RED BLOOD CELLS [Concomitant]
  3. DIPYRIDAMOLE [Concomitant]
  4. EPO [Concomitant]
  5. VITAMIN B-12 [Concomitant]
  6. MORPHINE [Concomitant]
  7. FOLIC ACID B9 [Concomitant]
  8. HYDROCORTISONE [Concomitant]

REACTIONS (1)
  - PLATELET COUNT DECREASED [None]
